FAERS Safety Report 9217966 (Version 2)
Quarter: 2013Q2

REPORT INFORMATION
  Report Type: Report from Study
  Country: US (occurrence: US)
  Receive Date: 20130408
  Receipt Date: 20130422
  Transmission Date: 20140414
  Serious: Yes (Other)
  Sender: FDA-Public Use
  Company Number: US-ACTELION-A-US2013-81486

PATIENT
  Age: 65 Year
  Sex: Female

DRUGS (3)
  1. VELETRI [Suspect]
     Indication: PULMONARY ARTERIAL HYPERTENSION
     Dosage: 27 NG/KG, PER MIN
     Route: 042
     Dates: start: 20090709
  2. LETAIRIS [Concomitant]
  3. COUMADIN [Concomitant]

REACTIONS (2)
  - Breast cancer [Unknown]
  - Catheter site erythema [Recovered/Resolved]
